FAERS Safety Report 11417233 (Version 1)
Quarter: 2015Q3

REPORT INFORMATION
  Report Type: Spontaneous
  Country: AU (occurrence: AU)
  Receive Date: 20150825
  Receipt Date: 20150825
  Transmission Date: 20151125
  Serious: Yes (Other)
  Sender: FDA-Public Use
  Company Number: AU-MYLANLABS-2015M1028485

PATIENT

DRUGS (1)
  1. CLOZAPINE. [Suspect]
     Active Substance: CLOZAPINE
     Indication: PRODUCT USED FOR UNKNOWN INDICATION
     Dosage: SINGLE DOSE OF 350MG
     Route: 048

REACTIONS (4)
  - Myoclonus [Recovering/Resolving]
  - Accidental exposure to product [Unknown]
  - Delirium [Recovered/Resolved]
  - Stupor [Recovered/Resolved]
